FAERS Safety Report 22189942 (Version 1)
Quarter: 2023Q2

REPORT INFORMATION
  Report Type: Spontaneous
  Country: US (occurrence: US)
  Receive Date: 20230410
  Receipt Date: 20230410
  Transmission Date: 20230721
  Serious: No
  Sender: FDA-Public Use
  Company Number: US-Bion-011427

PATIENT
  Age: 81 Year
  Sex: Female

DRUGS (1)
  1. IBUPROFEN [Suspect]
     Active Substance: IBUPROFEN
     Indication: Headache
     Dosage: 2 CAPLETS
     Dates: start: 20230330

REACTIONS (3)
  - Headache [Unknown]
  - Polyuria [Unknown]
  - Burning sensation [Unknown]
